FAERS Safety Report 15440720 (Version 1)
Quarter: 2018Q3

REPORT INFORMATION
  Report Type: Spontaneous
  Country: US (occurrence: US)
  Receive Date: 20180928
  Receipt Date: 20180928
  Transmission Date: 20181010
  Serious: Yes (Hospitalization)
  Sender: FDA-Public Use
  Company Number: US-SAKK-2018SA268760AA

PATIENT
  Age: 55 Year
  Sex: Male

DRUGS (2)
  1. QUININE [Concomitant]
     Active Substance: QUININE
     Dosage: UNK
  2. PRIMAQUINE [Suspect]
     Active Substance: PRIMAQUINE PHOSPHATE
     Indication: MALARIA
     Dosage: 2 DF, QW
     Dates: start: 201808

REACTIONS (2)
  - Malaria [Unknown]
  - Treatment failure [Unknown]
